FAERS Safety Report 11121744 (Version 1)
Quarter: 2015Q2

REPORT INFORMATION
  Report Type: Spontaneous
  Country: US (occurrence: None)
  Receive Date: 20150518
  Receipt Date: 20150518
  Transmission Date: 20150821
  Serious: No
  Sender: FDA-Public Use
  Company Number: None

PATIENT
  Age: 63 Year
  Sex: Female
  Weight: 72.58 kg

DRUGS (8)
  1. VITAMIN C [Concomitant]
     Active Substance: ASCORBIC ACID
  2. MAGNESIUM [Concomitant]
     Active Substance: MAGNESIUM
  3. ANKLE STRAPS [Concomitant]
  4. LEVAQUIN [Suspect]
     Active Substance: LEVOFLOXACIN
     Indication: SINUSITIS
     Dosage: IV - 4 DAYS ORAL 9 DAYS
     Dates: start: 20081023
  5. WHEELCHAIR [Concomitant]
     Active Substance: DEVICE
  6. D3 [Concomitant]
     Active Substance: 25-HYDROXYCHOLECALCIFEROL, 5-TRANS-
  7. VITAMIN B12 [Concomitant]
     Active Substance: CYANOCOBALAMIN
  8. ORTHO BOOT [Concomitant]

REACTIONS (10)
  - Pain [None]
  - Anxiety [None]
  - Depressed level of consciousness [None]
  - Muscle atrophy [None]
  - Gait disturbance [None]
  - Tendon pain [None]
  - Product quality issue [None]
  - Fatigue [None]
  - Tremor [None]
  - Neuropathy peripheral [None]

NARRATIVE: CASE EVENT DATE: 20081023
